FAERS Safety Report 18724774 (Version 1)
Quarter: 2021Q1

REPORT INFORMATION
  Report Type: Spontaneous
  Country: TW (occurrence: TW)
  Receive Date: 20210111
  Receipt Date: 20210111
  Transmission Date: 20210419
  Serious: Yes (Life-Threatening, Hospitalization, Other)
  Sender: FDA-Public Use
  Company Number: TW-MSNLABS-2021MSNLIT00002

PATIENT

DRUGS (11)
  1. CAPECITABINE TABLETS 500 MG [Suspect]
     Active Substance: CAPECITABINE
     Indication: METASTATIC GASTRIC CANCER
     Route: 065
  2. INFLIXIMAB [Interacting]
     Active Substance: INFLIXIMAB
     Route: 065
  3. OXALIPLATIN. [Suspect]
     Active Substance: OXALIPLATIN
     Indication: GASTRIC CANCER
  4. CAPECITABINE TABLETS 500 MG [Suspect]
     Active Substance: CAPECITABINE
     Indication: METASTASES TO LIVER
  5. PACLITAXEL INJECTION 300 MG/50 ML [Suspect]
     Active Substance: PACLITAXEL
     Indication: METASTASES TO LIVER
  6. OXALIPLATIN. [Suspect]
     Active Substance: OXALIPLATIN
     Indication: GASTRIC CANCER
     Route: 065
  7. NIVOLUMAB [Suspect]
     Active Substance: NIVOLUMAB
     Indication: GASTRIC CANCER
     Route: 065
  8. METHYLPREDNISOLONE. [Interacting]
     Active Substance: METHYLPREDNISOLONE
     Route: 065
  9. METHYLPREDNISOLONE. [Interacting]
     Active Substance: METHYLPREDNISOLONE
     Route: 065
  10. NIVOLUMAB [Suspect]
     Active Substance: NIVOLUMAB
     Indication: GASTRIC CANCER
  11. PACLITAXEL INJECTION 300 MG/50 ML [Suspect]
     Active Substance: PACLITAXEL
     Indication: GASTRIC CANCER
     Route: 065

REACTIONS (4)
  - Respiratory failure [Recovered/Resolved]
  - Disease progression [Unknown]
  - Treatment failure [Unknown]
  - Immune-mediated pneumonitis [Recovered/Resolved]
